FAERS Safety Report 10258891 (Version 2)
Quarter: 2014Q2

REPORT INFORMATION
  Report Type: Spontaneous
  Country: US (occurrence: US)
  Receive Date: 20140625
  Receipt Date: 20140625
  Transmission Date: 20141212
  Serious: No
  Sender: FDA-Public Use
  Company Number: US-ASTELLAS-2013US008929

PATIENT
  Age: 78 Year
  Sex: Female

DRUGS (21)
  1. VESICARE [Suspect]
     Indication: MICTURITION URGENCY
     Route: 048
  2. VESICARE [Suspect]
     Indication: POLLAKIURIA
     Route: 048
     Dates: start: 20130110, end: 20130204
  3. VESICARE [Suspect]
     Route: 048
     Dates: start: 20130314
  4. PRIMIDONE [Suspect]
     Indication: TREMOR
     Route: 065
  5. VERAPAMIL [Concomitant]
     Indication: HYPERTENSION
     Route: 065
  6. AMLODIPIN                          /00972401/ [Concomitant]
     Indication: HYPERTENSION
     Route: 065
  7. DOXAZOSINE [Concomitant]
     Indication: HYPERTENSION
     Route: 065
  8. LOSARTAN [Concomitant]
     Indication: HYPERTENSION
     Route: 065
  9. HYDROCHLOROTHIAZIDE [Concomitant]
     Indication: HYPERTENSION
     Route: 065
  10. SYNTHROID [Concomitant]
     Indication: HORMONE THERAPY
     Route: 065
  11. ATORVASTATIN [Concomitant]
     Indication: PRODUCT USED FOR UNKNOWN INDICATION
     Route: 065
  12. URSODIOL [Concomitant]
     Indication: PRODUCT USED FOR UNKNOWN INDICATION
     Route: 065
  13. OMEPRAZOLE [Concomitant]
     Indication: GASTROOESOPHAGEAL REFLUX DISEASE
     Route: 065
  14. RANITIDINE [Concomitant]
     Indication: GASTROOESOPHAGEAL REFLUX DISEASE
     Route: 065
  15. FLUTICASONE [Concomitant]
     Indication: PRODUCT USED FOR UNKNOWN INDICATION
     Route: 065
  16. CALCIUM CARBONATE W/MAGNESIUM [Concomitant]
     Indication: PRODUCT USED FOR UNKNOWN INDICATION
     Route: 065
  17. QVAR [Concomitant]
     Indication: PRODUCT USED FOR UNKNOWN INDICATION
     Route: 065
  18. IPRATROPIUM BROMIDE/ALBUTEROL SULFATE [Concomitant]
     Indication: PRODUCT USED FOR UNKNOWN INDICATION
     Route: 045
     Dates: start: 20130722
  19. PREDNISONE [Concomitant]
     Indication: ASTHMA
     Route: 065
     Dates: start: 20130728, end: 20130802
  20. VITAMIN D3 [Concomitant]
     Indication: PRODUCT USED FOR UNKNOWN INDICATION
     Route: 065
  21. MIRALAX                            /00754501/ [Concomitant]
     Indication: PRODUCT USED FOR UNKNOWN INDICATION
     Route: 065

REACTIONS (6)
  - Memory impairment [Recovered/Resolved]
  - Disturbance in attention [Recovered/Resolved]
  - Emotional disorder [Recovered/Resolved]
  - Feeling abnormal [Recovered/Resolved]
  - Dry eye [Not Recovered/Not Resolved]
  - Confusional state [Recovered/Resolved]
